FAERS Safety Report 12419498 (Version 1)
Quarter: 2016Q2

REPORT INFORMATION
  Report Type: Spontaneous
  Country: US (occurrence: None)
  Receive Date: 20160527
  Receipt Date: 20160527
  Transmission Date: 20160815
  Serious: No
  Sender: FDA-Public Use
  Company Number: None

PATIENT
  Sex: Female

DRUGS (4)
  1. LIPITOR [Suspect]
     Active Substance: ATORVASTATIN CALCIUM
  2. PRAVACHOL [Suspect]
     Active Substance: PRAVASTATIN SODIUM
  3. CRESTOR [Suspect]
     Active Substance: ROSUVASTATIN CALCIUM
  4. ZOCOR [Suspect]
     Active Substance: SIMVASTATIN

REACTIONS (3)
  - Muscle disorder [None]
  - Hypoaesthesia [None]
  - Pain in extremity [None]
